FAERS Safety Report 19321320 (Version 1)
Quarter: 2021Q2

REPORT INFORMATION
  Report Type: Spontaneous
  Country: US (occurrence: US)
  Receive Date: 20210528
  Receipt Date: 20210528
  Transmission Date: 20210717
  Serious: No
  Sender: FDA-Public Use
  Company Number: None

PATIENT
  Age: 71 Year
  Sex: Male

DRUGS (2)
  1. REMDESIVIR (EUA) [Suspect]
     Active Substance: REMDESIVIR
     Indication: COVID-19 TREATMENT
     Dates: start: 20200825, end: 20200827
  2. REMDESIVIR (EUA) [Suspect]
     Active Substance: REMDESIVIR
     Dates: start: 20200825, end: 20200827

REACTIONS (2)
  - Blood creatinine increased [None]
  - Blood urea increased [None]

NARRATIVE: CASE EVENT DATE: 20200826
